FAERS Safety Report 13965972 (Version 1)
Quarter: 2017Q3

REPORT INFORMATION
  Report Type: Spontaneous
  Country: IT (occurrence: IT)
  Receive Date: 20170913
  Receipt Date: 20170913
  Transmission Date: 20171128
  Serious: Yes (Other)
  Sender: FDA-Public Use
  Company Number: IT-SA-2017SA167645

PATIENT
  Sex: Female

DRUGS (9)
  1. APIDRA [Suspect]
     Active Substance: INSULIN GLULISINE
     Indication: DIABETES MELLITUS
     Dosage: DOSE:14 UNIT(S)
     Route: 058
     Dates: start: 20170831, end: 20170831
  2. DOMPERIDONE [Concomitant]
     Active Substance: DOMPERIDONE
  3. DOXAZOSIN [Concomitant]
     Active Substance: DOXAZOSIN\DOXAZOSIN MESYLATE
     Route: 048
  4. LANTUS [Concomitant]
     Active Substance: INSULIN GLARGINE
     Dosage: DOSE:14 UNIT(S)
     Route: 058
  5. ENAPREN [Concomitant]
     Active Substance: ENALAPRIL MALEATE
     Route: 048
  6. FUROSEMIDE. [Concomitant]
     Active Substance: FUROSEMIDE
     Dosage: DOSE:3 UNIT(S)
     Route: 048
  7. CLEXANE [Concomitant]
     Active Substance: ENOXAPARIN SODIUM
     Route: 058
  8. BISOPROLOL FUMARATE. [Concomitant]
     Active Substance: BISOPROLOL FUMARATE
     Route: 048
  9. LANSOPRAZOLE. [Concomitant]
     Active Substance: LANSOPRAZOLE
     Route: 048

REACTIONS (3)
  - Hypoglycaemia [Recovering/Resolving]
  - Product use issue [Unknown]
  - Sopor [Recovering/Resolving]

NARRATIVE: CASE EVENT DATE: 20170831
